FAERS Safety Report 13672570 (Version 1)
Quarter: 2017Q2

REPORT INFORMATION
  Report Type: Report from Study
  Country: JP (occurrence: JP)
  Receive Date: 20170621
  Receipt Date: 20170621
  Transmission Date: 20170830
  Serious: Yes (Death, Other)
  Sender: FDA-Public Use
  Company Number: JP-ACTELION-A-CH2015-127362

PATIENT
  Age: 39 Year
  Sex: Female

DRUGS (6)
  1. FLOLAN [Concomitant]
     Active Substance: EPOPROSTENOL SODIUM
  2. SODIUM RABEPRAZOLE [Concomitant]
     Active Substance: RABEPRAZOLE SODIUM
  3. OXYGEN. [Concomitant]
     Active Substance: OXYGEN
  4. NITRIC OXIDE. [Concomitant]
     Active Substance: NITRIC OXIDE
  5. SILDENAFIL. [Concomitant]
     Active Substance: SILDENAFIL
  6. OPSUMIT [Suspect]
     Active Substance: MACITENTAN
     Indication: PULMONARY ARTERIAL HYPERTENSION
     Dosage: 10 MG, QD
     Route: 048
     Dates: start: 20150806, end: 20150815

REACTIONS (8)
  - Abortion induced [Unknown]
  - Pulmonary arterial hypertension [Fatal]
  - Pregnancy [Unknown]
  - Haemodynamic instability [Fatal]
  - Caesarean section [Unknown]
  - Condition aggravated [Unknown]
  - Disseminated intravascular coagulation [Unknown]
  - Cardiac arrest [Unknown]

NARRATIVE: CASE EVENT DATE: 201508
